FAERS Safety Report 9996050 (Version 1)
Quarter: 2014Q1

REPORT INFORMATION
  Report Type: Spontaneous
  Country: FR (occurrence: FR)
  Receive Date: 20140311
  Receipt Date: 20140311
  Transmission Date: 20141002
  Serious: Yes (Life-Threatening)
  Sender: FDA-Public Use
  Company Number: FR-WATSON-2014-03927

PATIENT
  Age: 55 Year
  Sex: Female

DRUGS (1)
  1. DESMOPRESSIN (UNKNOWN) [Suspect]
     Indication: HAEMORRHAGE PROPHYLAXIS
     Dosage: 0.4 ?G/KG,SINGLE
     Route: 051

REACTIONS (1)
  - Myocardial infarction [Recovered/Resolved]
